APPROVED DRUG PRODUCT: LISINOPRIL AND HYDROCHLOROTHIAZIDE
Active Ingredient: HYDROCHLOROTHIAZIDE; LISINOPRIL
Strength: 12.5MG;10MG
Dosage Form/Route: TABLET;ORAL
Application: A076113 | Product #001
Applicant: PHARMOBEDIENT CONSULTING LLC
Approved: Jul 1, 2002 | RLD: No | RS: No | Type: DISCN